FAERS Safety Report 25535106 (Version 1)
Quarter: 2025Q3

REPORT INFORMATION
  Report Type: Spontaneous
  Country: GB (occurrence: GB)
  Receive Date: 20250709
  Receipt Date: 20250709
  Transmission Date: 20251020
  Serious: Yes (Other)
  Sender: MYLAN
  Company Number: GB-MYLANLABS-2025M1057028

PATIENT
  Sex: Male

DRUGS (2)
  1. CLOZAPINE [Suspect]
     Active Substance: CLOZAPINE
     Indication: Schizophrenia
     Dates: start: 20250603, end: 20250625
  2. LURASIDONE [Concomitant]
     Active Substance: LURASIDONE

REACTIONS (3)
  - Electrocardiogram QT interval abnormal [Unknown]
  - Myocarditis [Unknown]
  - Tachycardia [Unknown]

NARRATIVE: CASE EVENT DATE: 20250601
